FAERS Safety Report 9032632 (Version 2)
Quarter: 2013Q1

REPORT INFORMATION
  Report Type: Spontaneous
  Country: FR (occurrence: FR)
  Receive Date: 20130125
  Receipt Date: 20130225
  Transmission Date: 20140127
  Serious: Yes (Other)
  Sender: FDA-Public Use
  Company Number: FR-PFIZER INC-2013025342

PATIENT
  Sex: Female
  Weight: 1.24 kg

DRUGS (3)
  1. EFFEXOR LP [Suspect]
     Indication: DEPRESSION
     Dosage: 2 DF, DAILY
     Route: 064
     Dates: end: 20120422
  2. SERESTA [Suspect]
     Indication: DEPRESSION
     Dosage: 1 DF, DAILY
     Route: 062
     Dates: end: 20120422
  3. ZYPREXA [Suspect]
     Indication: DEPRESSION
     Dosage: 0.5 DF IN MORNING AND 1 DF IN EVENING
     Route: 064
     Dates: end: 20120422

REACTIONS (3)
  - Maternal exposure timing unspecified [Unknown]
  - Premature baby [Unknown]
  - Neonatal respiratory distress syndrome [Recovering/Resolving]
